FAERS Safety Report 16032794 (Version 1)
Quarter: 2019Q1

REPORT INFORMATION
  Report Type: Spontaneous
  Country: US (occurrence: US)
  Receive Date: 20190305
  Receipt Date: 20190305
  Transmission Date: 20190418
  Serious: No
  Sender: FDA-Public Use
  Company Number: US-IMPAX LABORATORIES, LLC-2018-IPXL-02029

PATIENT
  Age: 84 Year
  Sex: Male
  Weight: 56 kg

DRUGS (9)
  1. LOSARTAN (COZAAR) [Concomitant]
     Indication: BLOOD CHOLESTEROL ABNORMAL
     Dosage: 100 MG, ONCE A DAY (QD)
     Route: 065
  2. AZILECT [Concomitant]
     Active Substance: RASAGILINE MESYLATE
     Indication: PARKINSON^S DISEASE
     Dosage: 1 MG, 1 TABLET DAILY
     Route: 065
  3. RYTARY [Suspect]
     Active Substance: CARBIDOPA\LEVODOPA
     Indication: PARKINSON^S DISEASE
     Dosage: 48.75/195 MG, 1 CAPSULE AT BEDTIME
     Route: 048
     Dates: start: 20180505, end: 201806
  4. SINEMET [Concomitant]
     Active Substance: CARBIDOPA\LEVODOPA
     Indication: PARKINSON^S DISEASE
     Dosage: 25/100 MG, 1 TABLET THREE TIMES DAILY
     Route: 065
  5. TOPREL [Concomitant]
     Indication: BLOOD CHOLESTEROL ABNORMAL
     Dosage: 25 MG, ONCE A DAY (QD)
     Route: 065
  6. LAMISIL [Concomitant]
     Active Substance: TERBINAFINE HYDROCHLORIDE
     Indication: BLOOD CHOLESTEROL ABNORMAL
     Dosage: 250 MG, UNK
     Route: 065
  7. RYTARY [Suspect]
     Active Substance: CARBIDOPA\LEVODOPA
     Dosage: 48.75/195 MG, 2 CAPSULES AT BEDTIME
     Route: 048
     Dates: start: 201806
  8. HYDRODIURIL [Concomitant]
     Active Substance: HYDROCHLOROTHIAZIDE
     Indication: BLOOD CHOLESTEROL ABNORMAL
     Dosage: 12.5 MG, ONCE DAILY
     Route: 065
  9. PLAVIX [Concomitant]
     Active Substance: CLOPIDOGREL BISULFATE
     Indication: BLOOD CHOLESTEROL ABNORMAL
     Dosage: 75 MG, 1 TABLET DAILY
     Route: 065

REACTIONS (1)
  - Insomnia [Not Recovered/Not Resolved]
